FAERS Safety Report 25038709 (Version 1)
Quarter: 2025Q1

REPORT INFORMATION
  Report Type: Spontaneous
  Country: US (occurrence: US)
  Receive Date: 20250304
  Receipt Date: 20250304
  Transmission Date: 20250409
  Serious: No
  Sender: ROCHE
  Company Number: US-ROCHE-10000221954

PATIENT
  Sex: Female

DRUGS (1)
  1. ESBRIET [Suspect]
     Active Substance: PIRFENIDONE
     Indication: Idiopathic pulmonary fibrosis
     Dosage: TAKE 1 TABLET BY MOUTH THREE TIMES A DAY FOR 7 DAYS, THEN TAKE 2 TABLETS BY MOUTH 3 TIMES FOR 7 DAYS
     Route: 048
     Dates: start: 202411

REACTIONS (1)
  - Neck pain [Unknown]
